FAERS Safety Report 7646698-6 (Version None)
Quarter: 2011Q3

REPORT INFORMATION
  Report Type: 
  Country: None (occurrence: None)
  Receive Date: 20110729
  Receipt Date: 20110729
  Transmission Date: 20111222
  Serious: Yes (Life-Threatening, Hospitalization)
  Sender: FDA-Public Use
  Company Number: None

PATIENT
  Age: 79 Year
  Sex: Female
  Weight: 47.1741 kg

DRUGS (1)
  1. HALOPERIDOL [Suspect]

REACTIONS (4)
  - INJURY [None]
  - INCORRECT DOSE ADMINISTERED [None]
  - AMNESIA [None]
  - WRONG DRUG ADMINISTERED [None]
